FAERS Safety Report 5840706-0 (Version None)
Quarter: 2008Q3

REPORT INFORMATION
  Report Type: 
  Country: None (occurrence: None)
  Receive Date: 20080811
  Receipt Date: 20080714
  Transmission Date: 20090109
  Serious: Yes (Other)
  Sender: FDA-Public Use
  Company Number: US-PFIZER INC-2005001069

PATIENT
  Sex: Female

DRUGS (7)
  1. PROVERA [Suspect]
     Indication: HORMONE REPLACEMENT THERAPY
     Route: 048
  2. MEDROXYPROGESTERONE ACETATE [Suspect]
     Indication: HORMONE REPLACEMENT THERAPY
     Route: 048
  3. OGEN TABLET [Suspect]
     Indication: HORMONE REPLACEMENT THERAPY
     Route: 048
  4. PREMARIN [Suspect]
     Indication: HORMONE REPLACEMENT THERAPY
  5. PREMPRO [Suspect]
     Indication: HORMONE REPLACEMENT THERAPY
  6. CYCRIN [Suspect]
     Indication: HORMONE REPLACEMENT THERAPY
  7. ESTROGENIC SUBSTANCE [Suspect]
     Indication: HORMONE REPLACEMENT THERAPY

REACTIONS (1)
  - BREAST CANCER FEMALE [None]
